FAERS Safety Report 16682998 (Version 2)
Quarter: 2019Q3

REPORT INFORMATION
  Report Type: Spontaneous
  Country: US (occurrence: US)
  Receive Date: 20190808
  Receipt Date: 20190814
  Transmission Date: 20191004
  Serious: Yes (Hospitalization, Other)
  Sender: FDA-Public Use
  Company Number: PHEH2019US032666

PATIENT
  Age: 55 Year
  Sex: Male
  Weight: 111 kg

DRUGS (1)
  1. GILENYA [Suspect]
     Active Substance: FINGOLIMOD HYDROCHLORIDE
     Indication: MULTIPLE SCLEROSIS
     Dosage: 0.5 MG, QD
     Route: 048
     Dates: start: 20180123, end: 201811

REACTIONS (6)
  - Hyperbilirubinaemia [Not Recovered/Not Resolved]
  - Liver function test abnormal [Recovered/Resolved]
  - Hepatic enzyme increased [Unknown]
  - Multiple sclerosis relapse [Recovered/Resolved]
  - Hepatic steatosis [Recovered/Resolved]
  - Lymphocyte count decreased [Not Recovered/Not Resolved]

NARRATIVE: CASE EVENT DATE: 201801
